FAERS Safety Report 10670790 (Version 3)
Quarter: 2015Q1

REPORT INFORMATION
  Report Type: Spontaneous
  Country: US (occurrence: US)
  Receive Date: 20141223
  Receipt Date: 20150210
  Transmission Date: 20150720
  Serious: No
  Sender: FDA-Public Use
  Company Number: US-PFIZER INC-2014350316

PATIENT
  Age: 77 Year
  Sex: Female

DRUGS (7)
  1. PROPAFENONE. [Suspect]
     Active Substance: PROPAFENONE
     Dosage: UNK
  2. NORVASC [Suspect]
     Active Substance: AMLODIPINE BESYLATE
  3. TENORMIN [Suspect]
     Active Substance: ATENOLOL
     Dosage: UNK
  4. MULTAQ [Suspect]
     Active Substance: DRONEDARONE
     Dosage: UNK
  5. AMIODARONE HCL [Suspect]
     Active Substance: AMIODARONE HYDROCHLORIDE
     Dosage: UNK
  6. ALTACE [Suspect]
     Active Substance: RAMIPRIL
  7. FLECAINIDE ACETATE. [Suspect]
     Active Substance: FLECAINIDE ACETATE
     Dosage: UNK

REACTIONS (1)
  - Drug hypersensitivity [Unknown]

NARRATIVE: CASE EVENT DATE: 2008
